FAERS Safety Report 6902088-2 (Version None)
Quarter: 2010Q3

REPORT INFORMATION
  Report Type: 
  Country: None (occurrence: None)
  Receive Date: 20100803
  Receipt Date: 20080418
  Transmission Date: 20110219
  Serious: No
  Sender: FDA-Public Use
  Company Number: US-PFIZER INC-2008019462

PATIENT
  Sex: Male
  Weight: 72.6 kg

DRUGS (2)
  1. LYRICA [Suspect]
     Indication: NEUROPATHY PERIPHERAL
     Dates: start: 20070301, end: 20070301
  2. GABAPENTIN [Concomitant]
     Dates: start: 20030101

REACTIONS (4)
  - ASTHENIA [None]
  - DECREASED APPETITE [None]
  - LETHARGY [None]
  - VISUAL IMPAIRMENT [None]
